FAERS Safety Report 11804801 (Version 2)
Quarter: 2017Q1

REPORT INFORMATION
  Report Type: Spontaneous
  Country: LB (occurrence: LB)
  Receive Date: 20151205
  Receipt Date: 20170131
  Transmission Date: 20170428
  Serious: Yes (Other)
  Sender: FDA-Public Use
  Company Number: LB-SUN PHARMACEUTICAL INDUSTRIES LTD-2015R1-104916

PATIENT
  Age: 52 Year
  Sex: Male

DRUGS (3)
  1. FLUCONAZOLE. [Suspect]
     Active Substance: FLUCONAZOLE
     Indication: TINEA VERSICOLOUR
     Dosage: 300 MG/WEEK
     Route: 048
  2. ITRACONAZOLE. [Suspect]
     Active Substance: ITRACONAZOLE
     Indication: TINEA VERSICOLOUR
     Dosage: 200 MG, DAILY
     Route: 065
  3. FENTICONAZOLE NITRATE [Suspect]
     Active Substance: FENTICONAZOLE NITRATE
     Indication: TINEA VERSICOLOUR
     Dosage: UNK
     Route: 065

REACTIONS (1)
  - Drug resistance [Unknown]
